FAERS Safety Report 11788787 (Version 1)
Quarter: 2015Q4

REPORT INFORMATION
  Report Type: Spontaneous
  Country: US (occurrence: None)
  Receive Date: 20151130
  Receipt Date: 20151130
  Transmission Date: 20160305
  Serious: No
  Sender: FDA-Public Use
  Company Number: None

PATIENT
  Age: 29 Year
  Sex: Male
  Weight: 108.86 kg

DRUGS (8)
  1. VOLTAREN [Concomitant]
     Active Substance: DICLOFENAC SODIUM
  2. TRAMADOL. [Concomitant]
     Active Substance: TRAMADOL
  3. BACLOFEN. [Concomitant]
     Active Substance: BACLOFEN
  4. OXYCONTIN [Concomitant]
     Active Substance: OXYCODONE HYDROCHLORIDE
  5. VITAMINS B GROUP [Concomitant]
  6. MULTI VITAMINS [Concomitant]
  7. OXYCODONE HYDROCHLORIDE. [Suspect]
     Active Substance: OXYCODONE HYDROCHLORIDE
     Dosage: 1-2 PILLS QID (8 PILLS MAX)
     Route: 048
  8. ROXICODONE [Concomitant]
     Active Substance: OXYCODONE HYDROCHLORIDE

REACTIONS (8)
  - Vision blurred [None]
  - Product quality issue [None]
  - Product substitution issue [None]
  - Vomiting [None]
  - Drug ineffective [None]
  - Anxiety [None]
  - Abdominal pain [None]
  - Dizziness [None]

NARRATIVE: CASE EVENT DATE: 20151125
